FAERS Safety Report 13027713 (Version 1)
Quarter: 2016Q4

REPORT INFORMATION
  Report Type: Spontaneous
  Country: US (occurrence: US)
  Receive Date: 20161214
  Receipt Date: 20161214
  Transmission Date: 20170207
  Serious: No
  Sender: FDA-Public Use
  Company Number: US-PFIZER INC-2016576738

PATIENT
  Sex: Female

DRUGS (1)
  1. GABAPENTIN. [Suspect]
     Active Substance: GABAPENTIN

REACTIONS (7)
  - Condition aggravated [Unknown]
  - Psychomotor hyperactivity [Unknown]
  - Tremor [Unknown]
  - Anxiety [Unknown]
  - Palpitations [Unknown]
  - Heart rate abnormal [Unknown]
  - Insomnia [Unknown]
